FAERS Safety Report 7502915-4 (Version None)
Quarter: 2011Q2

REPORT INFORMATION
  Report Type: 
  Country: None (occurrence: None)
  Receive Date: 20110518
  Receipt Date: 20110503
  Transmission Date: 20111010
  Serious: Yes (Hospitalization, Other)
  Sender: FDA-Public Use
  Company Number: 2011MA004945

PATIENT
  Age: 46 Year
  Sex: Male

DRUGS (11)
  1. ASPIRIN [Concomitant]
  2. OMEPRAZOLE [Concomitant]
  3. CALCIUM CARBONATE [Concomitant]
  4. FLUNISOLIDE [Concomitant]
  5. MINERAL OIL [Concomitant]
  6. GABAPENTIN [Suspect]
     Indication: NEUROPATHY PERIPHERAL
     Dosage: 800 MG; TID; PO
     Route: 048
     Dates: start: 20091201, end: 20100601
  7. SIMVASTATIN [Concomitant]
  8. TRAMADOL HCL [Suspect]
     Indication: PAIN
  9. HYDROCHLOROTHIAIZDE [Concomitant]
  10. HYDROXYZINE [Concomitant]
  11. POLYVINIL ALCOHOL [Concomitant]

REACTIONS (10)
  - OESOPHAGEAL HAEMORRHAGE [None]
  - CHEST PAIN [None]
  - LIMB OPERATION [None]
  - MALAISE [None]
  - WRONG TECHNIQUE IN DRUG USAGE PROCESS [None]
  - EATING DISORDER [None]
  - HAEMATOCHEZIA [None]
  - VOMITING [None]
  - EROSIVE OESOPHAGITIS [None]
  - ABDOMINAL PAIN UPPER [None]
